FAERS Safety Report 6837183-X (Version None)
Quarter: 2010Q3

REPORT INFORMATION
  Report Type: 
  Country: None (occurrence: None)
  Receive Date: 20100707
  Receipt Date: 20100630
  Transmission Date: 20110219
  Serious: Yes (Death)
  Sender: FDA-Public Use
  Company Number: 2010US002605

PATIENT
  Age: 8 Year
  Sex: Male

DRUGS (6)
  1. PROGRAF [Suspect]
     Indication: RENAL TRANSPLANT
     Dosage: 2 MG, /D
     Dates: start: 20051126
  2. PREDNISOLONE [Concomitant]
  3. MYCOPHENOLATE MOFETIL [Concomitant]
  4. OMEPRAZOLE [Concomitant]
  5. ENALAPRIL MALEATE [Concomitant]
  6. LOVASTATIN [Concomitant]

REACTIONS (1)
  - BIOPSY [None]
